FAERS Safety Report 15893705 (Version 1)
Quarter: 2019Q1

REPORT INFORMATION
  Report Type: Spontaneous
  Country: IT (occurrence: IT)
  Receive Date: 20190131
  Receipt Date: 20190131
  Transmission Date: 20190417
  Serious: Yes (Hospitalization)
  Sender: FDA-Public Use
  Company Number: IT-TEVA-2019-IT-1004451

PATIENT
  Age: 44 Year
  Sex: Female

DRUGS (6)
  1. FOLINA [Concomitant]
     Active Substance: FOLIC ACID
  2. METHOTREXATE. [Suspect]
     Active Substance: METHOTREXATE
     Indication: RHEUMATOID ARTHRITIS
     Route: 030
     Dates: start: 20170601, end: 20181129
  3. ORENCIA [Suspect]
     Active Substance: ABATACEPT
     Indication: RHEUMATOID ARTHRITIS
     Route: 058
     Dates: start: 20180301
  4. LANSOX [Concomitant]
     Active Substance: LANSOPRAZOLE
  5. DIBASE [Concomitant]
     Active Substance: CHOLECALCIFEROL
  6. MEDROL [Concomitant]
     Active Substance: METHYLPREDNISOLONE

REACTIONS (2)
  - Hypertensive crisis [Recovered/Resolved]
  - Malaise [Recovered/Resolved]

NARRATIVE: CASE EVENT DATE: 20181129
